FAERS Safety Report 25116652 (Version 1)
Quarter: 2025Q1

REPORT INFORMATION
  Report Type: Other
  Country: CN (occurrence: CN)
  Receive Date: 20250325
  Receipt Date: 20250325
  Transmission Date: 20250409
  Serious: Yes (Hospitalization, Other)
  Sender: BIONPHARMA INC.
  Company Number: CN-Bion-014773

PATIENT
  Age: 7 Year
  Sex: Female

DRUGS (3)
  1. NAPROXEN SODIUM [Suspect]
     Active Substance: NAPROXEN SODIUM
     Indication: Respiratory tract infection
     Route: 048
  2. SPIRAMYCIN [Concomitant]
     Active Substance: SPIRAMYCIN
     Indication: Respiratory tract infection
  3. IBUPROFEN [Concomitant]
     Active Substance: IBUPROFEN
     Indication: Pyrexia

REACTIONS (1)
  - Toxic epidermal necrolysis [Recovering/Resolving]
